FAERS Safety Report 15838771 (Version 2)
Quarter: 2019Q1

REPORT INFORMATION
  Report Type: Spontaneous
  Country: JP (occurrence: JP)
  Receive Date: 20190117
  Receipt Date: 20190207
  Transmission Date: 20190417
  Serious: Yes (Hospitalization)
  Sender: FDA-Public Use
  Company Number: PHJP2019JP000655

PATIENT
  Age: 68 Year
  Sex: Male

DRUGS (5)
  1. EXFORGE COMBINATION OD TABLETS [Suspect]
     Active Substance: AMLODIPINE BESYLATE\VALSARTAN
     Indication: HYPERTENSION
     Dosage: UNK
     Route: 048
     Dates: end: 20181227
  2. EQUMET [Suspect]
     Active Substance: METFORMIN HYDROCHLORIDE\VILDAGLIPTIN
     Dosage: UNK (METFORMIN 500 MG/VILDAGLIPTIN 50 MG)
     Route: 048
     Dates: start: 20181221, end: 20181227
  3. LUSEFI [Suspect]
     Active Substance: LUSEOGLIFLOZIN
     Dosage: 2.5 MG, UNK
     Route: 048
     Dates: start: 20181219, end: 20181227
  4. EQUMET [Suspect]
     Active Substance: METFORMIN HYDROCHLORIDE\VILDAGLIPTIN
     Indication: TYPE 2 DIABETES MELLITUS
     Dosage: UNK (METFORMIN 500 MG/VILDAGLIPTIN 50 MG)
     Route: 048
     Dates: end: 20180907
  5. LUSEFI [Suspect]
     Active Substance: LUSEOGLIFLOZIN
     Indication: TYPE 2 DIABETES MELLITUS
     Dosage: 2.5 MG, QD
     Route: 048
     Dates: start: 20180807, end: 20180907

REACTIONS (6)
  - Vomiting [Unknown]
  - Hyperglycaemia [Unknown]
  - Dyspepsia [Unknown]
  - Decreased appetite [Unknown]
  - Diabetic ketoacidosis [Recovered/Resolved]
  - Renal failure [Recovering/Resolving]

NARRATIVE: CASE EVENT DATE: 20181221
